FAERS Safety Report 17045678 (Version 1)
Quarter: 2019Q4

REPORT INFORMATION
  Report Type: Spontaneous
  Country: US (occurrence: US)
  Receive Date: 20191118
  Receipt Date: 20191118
  Transmission Date: 20200122
  Serious: No
  Sender: FDA-Public Use
  Company Number: NVSC2019US037312

PATIENT
  Sex: Male
  Weight: 4.38 kg

DRUGS (1)
  1. ZOLGENSMA [Suspect]
     Active Substance: ONASEMNOGENE ABEPARVOVEC-XIOI
     Indication: SPINAL MUSCULAR ATROPHY
     Dosage: 24.8 ML, ONCE/SINGLE (PER HOUR)
     Route: 042
     Dates: start: 20191104, end: 20191104

REACTIONS (3)
  - Troponin increased [Unknown]
  - Candida infection [Unknown]
  - Echocardiogram abnormal [Unknown]

NARRATIVE: CASE EVENT DATE: 20191112
